FAERS Safety Report 25776855 (Version 1)
Quarter: 2025Q3

REPORT INFORMATION
  Report Type: Spontaneous
  Country: US (occurrence: US)
  Receive Date: 20250909
  Receipt Date: 20250909
  Transmission Date: 20251020
  Serious: No
  Sender: DOMPE FARMACEUTICI
  Company Number: US-FARMAPROD-202409-3256

PATIENT
  Sex: Female

DRUGS (16)
  1. OXERVATE [Suspect]
     Active Substance: CENEGERMIN-BKBJ
     Indication: Neurotrophic keratopathy
     Route: 047
     Dates: start: 20240904
  2. IBANDRONATE SODIUM [Concomitant]
     Active Substance: IBANDRONATE SODIUM
  3. GENTEAL TEARS SEVERE [Concomitant]
     Active Substance: HYPROMELLOSE 2910 (4000 MPA.S)
  4. RYBELSUS [Concomitant]
     Active Substance: SEMAGLUTIDE
  5. REPATHA [Concomitant]
     Active Substance: EVOLOCUMAB
  6. ZETONNA [Concomitant]
     Active Substance: CICLESONIDE
  7. SYMBICORT [Concomitant]
     Active Substance: BUDESONIDE\FORMOTEROL FUMARATE DIHYDRATE
  8. BIOTIN [Concomitant]
     Active Substance: BIOTIN
  9. CALCIUM [Concomitant]
     Active Substance: CALCIUM
  10. LOSARTAN POTASSIUM [Concomitant]
     Active Substance: LOSARTAN POTASSIUM
  11. CARVEDILOL [Concomitant]
     Active Substance: CARVEDILOL
  12. ASPIRIN [Concomitant]
     Active Substance: ASPIRIN
  13. ALEVE [Concomitant]
     Active Substance: NAPROXEN SODIUM
  14. SYSTANE (HYPROMELLOSE 2910 (4000 MPA.S)) [Concomitant]
     Active Substance: HYPROMELLOSE 2910 (4000 MPA.S)
  15. FLUOROMETHOLONE [Concomitant]
     Active Substance: FLUOROMETHOLONE
  16. MIEBO [Concomitant]
     Active Substance: PERFLUOROHEXYLOCTANE

REACTIONS (1)
  - Eye pain [Unknown]
